FAERS Safety Report 13821147 (Version 3)
Quarter: 2017Q3

REPORT INFORMATION
  Report Type: Spontaneous
  Country: IE (occurrence: IE)
  Receive Date: 20170801
  Receipt Date: 20170808
  Transmission Date: 20171127
  Serious: Yes (Other)
  Sender: FDA-Public Use
  Company Number: IE-CONCORDIA PHARMACEUTICALS INC.-GSH201707-004445

PATIENT
  Age: 58 Year
  Sex: Female

DRUGS (1)
  1. HYDROXYCHLOROQUINE [Suspect]
     Active Substance: HYDROXYCHLOROQUINE
     Indication: ADENOCARCINOMA
     Route: 065

REACTIONS (3)
  - Treatment failure [Unknown]
  - Disease progression [Recovering/Resolving]
  - Adenocarcinoma [Recovering/Resolving]
